FAERS Safety Report 23054004 (Version 1)
Quarter: 2023Q4

REPORT INFORMATION
  Report Type: Spontaneous
  Country: PT (occurrence: PT)
  Receive Date: 20231011
  Receipt Date: 20231011
  Transmission Date: 20240110
  Serious: Yes (Other)
  Sender: FDA-Public Use
  Company Number: None

PATIENT
  Age: 42 Year
  Sex: Female

DRUGS (9)
  1. PACLITAXEL [Suspect]
     Active Substance: PACLITAXEL
     Indication: Breast neoplasm
     Dosage: SOLUTION FOR INJECTION 500?ML IN 3-HOUR INFUSION EVERY 21 DAYS
     Dates: start: 20230824, end: 20230824
  2. DEXAMETHASONE [Concomitant]
     Active Substance: DEXAMETHASONE
     Dosage: 12 MG EV
  3. FAMOTIDINE [Concomitant]
     Active Substance: FAMOTIDINE
     Dosage: 20 MG ORAL
  4. BISOPROLOL [Concomitant]
     Active Substance: BISOPROLOL\BISOPROLOL FUMARATE
  5. CLEMASTINE [Concomitant]
     Active Substance: CLEMASTINE
     Dosage: 2 MG EV
  6. SPIRONOLACTONE [Concomitant]
     Active Substance: SPIRONOLACTONE
  7. ESTAZOLAM [Concomitant]
     Active Substance: ESTAZOLAM
  8. EDOXABAN [Concomitant]
     Active Substance: EDOXABAN
  9. GRANISETRON [Concomitant]
     Active Substance: GRANISETRON
     Dosage: 1 MG EV

REACTIONS (3)
  - Chest discomfort [Recovered/Resolved]
  - Bradycardia [Recovered/Resolved]
  - Malaise [Recovered/Resolved]

NARRATIVE: CASE EVENT DATE: 20230824
